FAERS Safety Report 21481411 (Version 1)
Quarter: 2022Q4

REPORT INFORMATION
  Report Type: Spontaneous
  Country: CY (occurrence: CY)
  Receive Date: 20221019
  Receipt Date: 20221019
  Transmission Date: 20230113
  Serious: Yes (Hospitalization, Other)
  Sender: FDA-Public Use
  Company Number: CY-BRISTOL-MYERS SQUIBB COMPANY-2022-122513

PATIENT
  Age: 85 Year
  Sex: Female

DRUGS (1)
  1. ELIQUIS [Suspect]
     Active Substance: APIXABAN
     Indication: Thrombosis prophylaxis
     Route: 065

REACTIONS (3)
  - Fall [Unknown]
  - Hepatic rupture [Unknown]
  - Haemorrhage [Unknown]
